FAERS Safety Report 8208978-5 (Version None)
Quarter: 2012Q1

REPORT INFORMATION
  Report Type: 
  Country: None (occurrence: None)
  Receive Date: 20120314
  Receipt Date: 20120308
  Transmission Date: 20120608
  Serious: Yes (Other)
  Sender: FDA-Public Use
  Company Number: ES-PFIZER INC-2012061957

PATIENT
  Age: 73 Year
  Sex: Female

DRUGS (1)
  1. LINEZOLID [Suspect]
     Indication: DEVICE RELATED INFECTION
     Dosage: UNK

REACTIONS (3)
  - NEUROPATHY PERIPHERAL [None]
  - VISUAL ACUITY REDUCED [None]
  - VERTIGO [None]
